FAERS Safety Report 5064370-6 (Version None)
Quarter: 2006Q3

REPORT INFORMATION
  Report Type: 
  Country: None (occurrence: None)
  Receive Date: 20060728
  Receipt Date: 20060718
  Transmission Date: 20061208
  Serious: Yes (Other)
  Sender: FDA-Public Use
  Company Number: IT-JNJFOC-20060703281

PATIENT
  Age: 72 Year
  Sex: Male

DRUGS (8)
  1. TAVANIC [Suspect]
     Indication: UPPER RESPIRATORY TRACT INFECTION
     Route: 048
     Dates: start: 20060617, end: 20060622
  2. ATENOLOL [Concomitant]
     Indication: HYPERTENSION
     Route: 065
  3. PRADIF [Concomitant]
     Indication: BENIGN PROSTATIC HYPERPLASIA
     Route: 065
  4. ALIFLUS [Concomitant]
     Indication: CHRONIC OBSTRUCTIVE PULMONARY DISEASE
     Route: 065
  5. SINEMET [Concomitant]
     Indication: TREMOR
     Route: 065
  6. LANSOPRAZOLE [Concomitant]
     Indication: GASTRIC ULCER
     Route: 065
  7. ALLOPURINOL [Concomitant]
     Indication: GOUT
     Route: 065
  8. AVELOX [Concomitant]
     Indication: UPPER RESPIRATORY TRACT INFECTION
     Route: 065
     Dates: start: 20060517, end: 20060526

REACTIONS (3)
  - OEDEMA [None]
  - SKIN DISCOLOURATION [None]
  - TENDONITIS [None]
